FAERS Safety Report 8325001-2 (Version None)
Quarter: 2012Q2

REPORT INFORMATION
  Report Type: 
  Country: None (occurrence: None)
  Receive Date: 20120501
  Receipt Date: 20120427
  Transmission Date: 20120825
  Serious: Yes (Death, Hospitalization)
  Sender: FDA-Public Use
  Company Number: JP-B.I. PHARMACEUTICALS,INC./RIDGEFIELD-2012-BP-09271NB

PATIENT
  Age: 72 Year
  Sex: Male
  Weight: 43 kg

DRUGS (6)
  1. PRADAXA [Suspect]
     Indication: CEREBROVASCULAR ACCIDENT PROPHYLAXIS
     Dosage: 220 MG
     Route: 048
     Dates: start: 20110419, end: 20120220
  2. PLAVIX [Suspect]
     Indication: CEREBROVASCULAR ACCIDENT PROPHYLAXIS
     Dosage: 75 MG
     Route: 048
     Dates: start: 20110308
  3. LANSOPRAZOLE [Concomitant]
     Route: 065
  4. MEDICATION OTHERWISE NOT SPECIFIED [Concomitant]
     Dosage: 6 G
     Route: 065
  5. PHENYTOIN SODIUM CAP [Concomitant]
     Dosage: 250 MG
     Route: 065
  6. ASPIRIN [Suspect]
     Indication: CEREBROVASCULAR ACCIDENT PROPHYLAXIS
     Dosage: 100 MG
     Route: 048
     Dates: start: 20110319, end: 20120220

REACTIONS (3)
  - TONGUE HAEMORRHAGE [None]
  - SHOCK HAEMORRHAGIC [None]
  - LOWER GASTROINTESTINAL HAEMORRHAGE [None]
